FAERS Safety Report 19138264 (Version 1)
Quarter: 2021Q2

REPORT INFORMATION
  Report Type: Spontaneous
  Country: US (occurrence: US)
  Receive Date: 20210415
  Receipt Date: 20210415
  Transmission Date: 20210717
  Serious: Yes (Other)
  Sender: FDA-Public Use
  Company Number: US-SA-2021SA122709

PATIENT
  Age: 42 Year
  Sex: Male

DRUGS (2)
  1. LEMTRADA [Suspect]
     Active Substance: ALEMTUZUMAB
     Dosage: 25 MG
     Route: 041
     Dates: end: 20200610
  2. LEMTRADA [Suspect]
     Active Substance: ALEMTUZUMAB
     Indication: MULTIPLE SCLEROSIS
     Dosage: 25 MG
     Route: 041
     Dates: start: 20190603

REACTIONS (4)
  - Autoimmune thyroiditis [Unknown]
  - Hyperthyroidism [Unknown]
  - Hypothyroidism [Unknown]
  - Incorrect dose administered [Unknown]

NARRATIVE: CASE EVENT DATE: 20190603
